FAERS Safety Report 9039277 (Version 1)
Quarter: 2013Q1

REPORT INFORMATION
  Report Type: Spontaneous
  Country: US (occurrence: None)
  Receive Date: 20130123
  Receipt Date: 20130123
  Transmission Date: 20140127
  Serious: Yes (Life-Threatening, Hospitalization)
  Sender: FDA-Public Use
  Company Number: None

PATIENT
  Age: 58 Year
  Sex: Male
  Weight: 96 kg

DRUGS (1)
  1. STIVARGA, 40 MG, BAYER [Suspect]
     Indication: COLORECTAL CANCER
     Route: 048
     Dates: start: 20121206, end: 20130121

REACTIONS (3)
  - Jaundice [None]
  - Decreased appetite [None]
  - Abdominal pain upper [None]
